FAERS Safety Report 6823892-5 (Version None)
Quarter: 2010Q3

REPORT INFORMATION
  Report Type: 
  Country: None (occurrence: None)
  Receive Date: 20100708
  Receipt Date: 20060909
  Transmission Date: 20110219
  Serious: No
  Sender: FDA-Public Use
  Company Number: US-PFIZER INC-2006111672

PATIENT
  Sex: Female
  Weight: 80.74 kg

DRUGS (3)
  1. CHANTIX [Suspect]
     Indication: SMOKING CESSATION THERAPY
     Dates: start: 20060904, end: 20060908
  2. ZELNORM [Interacting]
     Indication: IRRITABLE BOWEL SYNDROME
     Dates: start: 20060907
  3. LORTAB [Concomitant]

REACTIONS (10)
  - ANXIETY [None]
  - DEPRESSION [None]
  - DISTURBANCE IN ATTENTION [None]
  - DRUG INTERACTION [None]
  - FEELING ABNORMAL [None]
  - IMPULSIVE BEHAVIOUR [None]
  - IRRITABLE BOWEL SYNDROME [None]
  - MIGRAINE [None]
  - PARANOIA [None]
  - VISUAL IMPAIRMENT [None]
